FAERS Safety Report 23336247 (Version 1)
Quarter: 2023Q4

REPORT INFORMATION
  Report Type: Spontaneous
  Country: TR (occurrence: TR)
  Receive Date: 20231225
  Receipt Date: 20231225
  Transmission Date: 20240110
  Serious: Yes (Hospitalization)
  Sender: FDA-Public Use
  Company Number: TR-ABBVIE-5553557

PATIENT
  Age: 44 Year
  Sex: Female

DRUGS (1)
  1. BOTULINUM TOXIN TYPE A [Suspect]
     Active Substance: BOTULINUM TOXIN TYPE A
     Indication: Product used for unknown indication
     Dosage: TIME INTERVAL: AS NECESSARY
     Route: 065

REACTIONS (6)
  - Muscle strength abnormal [Unknown]
  - Dysphagia [Recovered/Resolved]
  - Eyelid ptosis [Recovering/Resolving]
  - Eyelid ptosis [Recovering/Resolving]
  - Areflexia [Recovering/Resolving]
  - Facial paralysis [Recovering/Resolving]
